FAERS Safety Report 6126277-2 (Version None)
Quarter: 2009Q1

REPORT INFORMATION
  Report Type: 
  Country: None (occurrence: None)
  Receive Date: 20090320
  Receipt Date: 20090306
  Transmission Date: 20090719
  Serious: Yes (Life-Threatening, Hospitalization)
  Sender: FDA-Public Use
  Company Number: DE-ROCHE-615377

PATIENT
  Sex: Female

DRUGS (3)
  1. MYCOPHENOLATE MOFETIL [Suspect]
     Indication: LIVER TRANSPLANT
     Route: 048
     Dates: start: 20090130, end: 20090216
  2. BELATACEPT [Suspect]
     Indication: LIVER TRANSPLANT
     Dosage: DOSE REGIMEN WAS BLINDED.
     Route: 042
     Dates: start: 20080130, end: 20090210
  3. BLINDED BASILIXIMAB [Suspect]
     Indication: LIVER TRANSPLANT
     Route: 042
     Dates: start: 20090130, end: 20090203

REACTIONS (3)
  - GRAFT LOSS [None]
  - PNEUMONIA [None]
  - SEPSIS [None]
